FAERS Safety Report 23841557 (Version 2)
Quarter: 2024Q3

REPORT INFORMATION
  Report Type: Spontaneous
  Country: US (occurrence: US)
  Receive Date: 20240510
  Receipt Date: 20240808
  Transmission Date: 20241017
  Serious: No
  Sender: BRISTOL MYERS SQUIBB
  Company Number: US-BRISTOL-MYERS SQUIBB COMPANY-2024-072981

PATIENT
  Age: 65 Year
  Sex: Female

DRUGS (2)
  1. YERVOY [Suspect]
     Active Substance: IPILIMUMAB
     Indication: Tongue neoplasm malignant stage unspecified
     Dosage: DOSE : 200 MG; FREQ : EVERY 3 WEEKS
     Route: 042
  2. LIBTAYO [Concomitant]
     Active Substance: CEMIPLIMAB-RWLC
     Indication: Product used for unknown indication

REACTIONS (1)
  - Off label use [Unknown]
